FAERS Safety Report 4645702-7 (Version None)
Quarter: 2005Q2

REPORT INFORMATION
  Report Type: 
  Country: None (occurrence: None)
  Receive Date: 20050427
  Receipt Date: 20050418
  Transmission Date: 20051028
  Serious: Yes (Death)
  Sender: FDA-Public Use
  Company Number: ES-ABBOTT-05P-144-0297982-00

PATIENT
  Age: 66 Year
  Sex: Female

DRUGS (3)
  1. KALETRA [Suspect]
     Indication: HIV INFECTION
     Route: 048
     Dates: start: 20030219
  2. TENOFOVIR [Concomitant]
     Indication: HIV INFECTION
     Dates: start: 20030219
  3. DIDANOSINE [Concomitant]
     Indication: HIV INFECTION
     Dates: start: 20030219

REACTIONS (1)
  - HEPATIC CIRRHOSIS [None]
